FAERS Safety Report 9152352 (Version 1)
Quarter: 2013Q1

REPORT INFORMATION
  Report Type: Spontaneous
  Country: US (occurrence: US)
  Receive Date: 20130308
  Receipt Date: 20130308
  Transmission Date: 20140127
  Serious: No
  Sender: FDA-Public Use
  Company Number: US-ENDO PHARMACEUTICALS INC.-OPCR20130004

PATIENT
  Age: 49 Year
  Sex: Male

DRUGS (3)
  1. OPANA ER [Suspect]
     Indication: PAIN
     Route: 048
     Dates: start: 201212
  2. OPANA ER [Suspect]
     Route: 048
     Dates: start: 201212, end: 201212
  3. OPANA ER [Suspect]
     Route: 048
     Dates: start: 201212, end: 201212

REACTIONS (3)
  - Drug screen negative [Recovered/Resolved]
  - Insomnia [Not Recovered/Not Resolved]
  - Drug ineffective [Not Recovered/Not Resolved]
